FAERS Safety Report 12252909 (Version 1)
Quarter: 2016Q2

REPORT INFORMATION
  Report Type: Report from Study
  Country: US (occurrence: US)
  Receive Date: 20160411
  Receipt Date: 20160411
  Transmission Date: 20160815
  Serious: No
  Sender: FDA-Public Use
  Company Number: ADR-2015-01486

PATIENT
  Age: 71 Year
  Sex: Male

DRUGS (1)
  1. LIORESAL [Suspect]
     Active Substance: BACLOFEN
     Dosage: 52.80 MCG/DAY
     Route: 037

REACTIONS (2)
  - Hypotension [Recovered/Resolved]
  - Adverse drug reaction [Recovered/Resolved]
